FAERS Safety Report 8540064 (Version 16)
Quarter: 2014Q4

REPORT INFORMATION
  Report Type: Report from Study
  Country: CA (occurrence: CA)
  Receive Date: 20120502
  Receipt Date: 20141114
  Transmission Date: 20150529
  Serious: Yes (Death, Hospitalization, Other)
  Sender: FDA-Public Use
  Company Number: PHHY2012CA034878

PATIENT
  Age: 68 Year
  Sex: Male

DRUGS (1)
  1. SANDOSTATIN LAR DEPOT [Suspect]
     Active Substance: OCTREOTIDE ACETATE
     Indication: NEUROENDOCRINE CARCINOMA METASTATIC
     Dosage: 30 MG, ONCE A MONTH
     Route: 030
     Dates: start: 20101111, end: 20140922

REACTIONS (18)
  - Central nervous system lymphoma [Unknown]
  - Urinary tract infection [Unknown]
  - Lymphoma [Unknown]
  - Second primary malignancy [Unknown]
  - Inflammation [Unknown]
  - Cerebrovascular accident [Unknown]
  - Wound infection bacterial [Unknown]
  - Hypoaesthesia [Unknown]
  - Synovial cyst [Unknown]
  - Lymphadenopathy [Unknown]
  - Arrhythmia [Unknown]
  - Death [Fatal]
  - Clostridium difficile infection [Unknown]
  - Malignant neoplasm progression [Unknown]
  - Pneumonia [Unknown]
  - Bronchitis [Unknown]
  - Neck pain [Unknown]
  - Jaundice [Unknown]

NARRATIVE: CASE EVENT DATE: 20140912
